FAERS Safety Report 8851832 (Version 3)
Quarter: 2012Q4

REPORT INFORMATION
  Report Type: 
  Country: US (occurrence: US)
  Receive Date: 20121022
  Receipt Date: 20121231
  Transmission Date: 20130627
  Serious: Yes (Other)
  Sender: FDA-Public Use
  Company Number: US-BAYER-2012-107808

PATIENT
  Age: 34 Year
  Sex: Female
  Weight: 54.69 kg

DRUGS (3)
  1. MIRENA [Suspect]
     Dosage: q20 mcg/24hr, CONT
     Route: 015
     Dates: start: 20111014, end: 20121019
  2. ZOLOFT [Concomitant]
     Indication: POSTPARTUM DEPRESSION
     Dosage: 25 mg, UNK
     Dates: start: 20110920
  3. TINDAMAX [Concomitant]
     Dosage: 500 mg, UNK
     Dates: start: 20121004, end: 20121005

REACTIONS (2)
  - Device breakage [None]
  - Complication of device removal [Recovered/Resolved]
